FAERS Safety Report 9454862 (Version 1)
Quarter: 2013Q3

REPORT INFORMATION
  Report Type: Report from Study
  Country: BR (occurrence: BR)
  Receive Date: 20130813
  Receipt Date: 20130813
  Transmission Date: 20140515
  Serious: Yes (Death, Other)
  Sender: FDA-Public Use
  Company Number: PHHY2013BR085874

PATIENT
  Age: 45 Year
  Sex: Female
  Weight: 100 kg

DRUGS (2)
  1. MYFORTIC [Suspect]
     Dosage: 720 MG, BID (EVERY 12 HOURS)
     Dates: start: 20130403
  2. MYFORTIC [Suspect]
     Dosage: 360 MG, TID (EVERY 08 HOURS)
     Dates: start: 20130607

REACTIONS (2)
  - Cerebrovascular accident [Fatal]
  - Diarrhoea [Unknown]
